FAERS Safety Report 18061214 (Version 2)
Quarter: 2020Q3

REPORT INFORMATION
  Report Type: Spontaneous
  Country: AT (occurrence: AT)
  Receive Date: 20200723
  Receipt Date: 20200730
  Transmission Date: 20201103
  Serious: Yes (Other)
  Sender: FDA-Public Use
  Company Number: NVSC2020AT203759

PATIENT
  Age: 34 Year
  Sex: Female

DRUGS (1)
  1. CLAVAMOX 875 MG/125 MG ? FILMTABLETTEN [Suspect]
     Active Substance: AMOXICILLIN\CLAVULANATE POTASSIUM
     Indication: PRODUCT USED FOR UNKNOWN INDICATION
     Dosage: GEM?? FACHINFORMATION
     Route: 048
     Dates: start: 20200624, end: 20200624

REACTIONS (2)
  - Type I hypersensitivity [Recovered/Resolved]
  - Urticaria [Recovered/Resolved]

NARRATIVE: CASE EVENT DATE: 20200624
